FAERS Safety Report 12656432 (Version 1)
Quarter: 2016Q3

REPORT INFORMATION
  Report Type: Spontaneous
  Country: US (occurrence: US)
  Receive Date: 20160816
  Receipt Date: 20160816
  Transmission Date: 20161109
  Serious: No
  Sender: FDA-Public Use
  Company Number: US-PERRIGO-15US010630

PATIENT
  Age: 73 Year
  Sex: Female
  Weight: 102.4 kg

DRUGS (9)
  1. FOLIC ACID. [Concomitant]
     Active Substance: FOLIC ACID
     Indication: SUPPLEMENTATION THERAPY
     Dosage: UNK
     Route: 048
  2. SYNTHROID [Concomitant]
     Active Substance: LEVOTHYROXINE SODIUM
     Indication: HYPOTHYROIDISM
     Dosage: UNK
     Route: 048
  3. PRANDIN                            /01393601/ [Concomitant]
     Indication: DIABETES MELLITUS
     Dosage: UNK
     Route: 048
  4. VITAMIN D                          /00107901/ [Concomitant]
     Active Substance: ERGOCALCIFEROL
     Indication: SUPPLEMENTATION THERAPY
     Dosage: UNK
     Route: 048
  5. LORATADINE. [Suspect]
     Active Substance: LORATADINE
     Indication: RHINORRHOEA
     Dosage: 10 MG, QD
     Route: 048
     Dates: start: 20151005
  6. LISINOPRIL. [Concomitant]
     Active Substance: LISINOPRIL
     Indication: HYPERTENSION
     Dosage: UNK
     Route: 048
  7. CELEBREX [Concomitant]
     Active Substance: CELECOXIB
     Indication: ARTHRITIS
     Dosage: UNK
     Route: 048
  8. CEFDINIR. [Suspect]
     Active Substance: CEFDINIR
     Indication: INFECTION
     Dosage: 300 MG, BID
     Route: 048
     Dates: start: 20151005
  9. ALLOPURINOL. [Concomitant]
     Active Substance: ALLOPURINOL
     Indication: GOUT
     Dosage: UNK
     Route: 048

REACTIONS (1)
  - Blood glucose increased [Unknown]

NARRATIVE: CASE EVENT DATE: 20151008
